FAERS Safety Report 15269686 (Version 1)
Quarter: 2018Q3

REPORT INFORMATION
  Report Type: Spontaneous
  Country: US (occurrence: US)
  Receive Date: 20180726
  Receipt Date: 20180726
  Transmission Date: 20181010
  Serious: No
  Sender: FDA-Public Use
  Company Number: None

PATIENT
  Age: 93 Year
  Sex: Male

DRUGS (2)
  1. CYCLOSPORINE. [Suspect]
     Active Substance: CYCLOSPORINE
     Route: 048
     Dates: start: 20180223, end: 20180726
  2. METOPROLOL ER SUCC [Concomitant]
     Active Substance: METOPROLOL SUCCINATE
     Dates: start: 20180216

REACTIONS (1)
  - Acne [None]

NARRATIVE: CASE EVENT DATE: 20180228
